FAERS Safety Report 7242550-9 (Version None)
Quarter: 2010Q4

REPORT INFORMATION
  Report Type: 
  Country: None (occurrence: None)
  Receive Date: 20101130
  Receipt Date: 20090723
  Transmission Date: 20110411
  Serious: No
  Sender: FDA-Public Use
  Company Number: 2009SP016867

PATIENT
  Sex: Female

DRUGS (1)
  1. NUVARING [Suspect]
     Indication: PRODUCT USED FOR UNKNOWN INDICATION
     Dosage: VAG
     Route: 067

REACTIONS (3)
  - ACNE [None]
  - FLUSHING [None]
  - SINUS DISORDER [None]
